FAERS Safety Report 8839607 (Version 2)
Quarter: 2012Q4

REPORT INFORMATION
  Report Type: 
  Country: GB (occurrence: GB)
  Receive Date: 20121015
  Receipt Date: 20121126
  Transmission Date: 20130627
  Serious: Yes (Other)
  Sender: FDA-Public Use
  Company Number: PHFR2012GB005385

PATIENT
  Age: 50 Year
  Sex: Female

DRUGS (1)
  1. ESTRADOT [Suspect]
     Indication: HORMONE REPLACEMENT THERAPY
     Route: 062
     Dates: start: 201203

REACTIONS (4)
  - Myelofibrosis [Unknown]
  - Hyperhidrosis [Unknown]
  - Night sweats [Unknown]
  - Hot flush [Unknown]
